FAERS Safety Report 8953076 (Version 3)
Quarter: 2013Q1

REPORT INFORMATION
  Report Type: Spontaneous
  Country: JP (occurrence: JP)
  Receive Date: 20121205
  Receipt Date: 20130117
  Transmission Date: 20140127
  Serious: Yes (Hospitalization)
  Sender: FDA-Public Use
  Company Number: JP-B.I. PHARMACEUTICALS,INC./RIDGEFIELD-2012-BI-00461NB

PATIENT
  Age: 75 Year
  Sex: Male
  Weight: 60 kg

DRUGS (9)
  1. PRAZAXA [Suspect]
     Indication: ATRIAL FIBRILLATION
     Dosage: 220 MG
     Route: 048
     Dates: start: 20111102, end: 20120627
  2. PRAZAXA [Suspect]
     Dosage: 300 MG
     Route: 048
     Dates: start: 20120703, end: 20121006
  3. WARFARIN POTASSIUM [Concomitant]
     Dosage: 3 MG
     Route: 048
     Dates: start: 20120628, end: 20120702
  4. HYDREA [Concomitant]
     Indication: CHRONIC MYELOID LEUKAEMIA
     Dosage: 500 MG
     Route: 048
     Dates: end: 20121006
  5. VASOLAN [Concomitant]
     Indication: ATRIAL FIBRILLATION
     Dosage: 120 MG
     Route: 048
  6. TRIDEMIN [Concomitant]
     Indication: CARDIAC FAILURE
     Dosage: 30 MG
     Route: 048
     Dates: end: 20121006
  7. SOLDEM 3A [Concomitant]
     Indication: FLUID REPLACEMENT
     Dosage: 1000 ML
     Route: 042
     Dates: start: 20121006, end: 20121008
  8. GASTER [Concomitant]
     Indication: PROPHYLAXIS AGAINST GASTROINTESTINAL ULCER
     Dosage: 40 MG
     Route: 042
     Dates: start: 20121006, end: 20121008
  9. DIART [Concomitant]
     Indication: CARDIAC FAILURE
     Dosage: 30 MG
     Route: 048
     Dates: end: 20121006

REACTIONS (3)
  - Thalamus haemorrhage [Not Recovered/Not Resolved]
  - Embolic stroke [Not Recovered/Not Resolved]
  - Drug ineffective [Not Recovered/Not Resolved]
